FAERS Safety Report 7209512-9 (Version None)
Quarter: 2010Q4

REPORT INFORMATION
  Report Type: 
  Country: None (occurrence: None)
  Receive Date: 20101223
  Receipt Date: 20101217
  Transmission Date: 20110411
  Serious: Yes (Hospitalization, Other)
  Sender: FDA-Public Use
  Company Number: BVT-000648

PATIENT
  Age: 6 Year
  Sex: Female
  Weight: 22 kg

DRUGS (2)
  1. KINERET [Suspect]
     Indication: HISTIOCYTOSIS HAEMATOPHAGIC
     Dosage: 44 MG, 1 IN 1 D
     Dates: start: 20100831, end: 20100913
  2. PREDNISONE TAB [Concomitant]

REACTIONS (2)
  - ARRHYTHMIA [None]
  - TACHYCARDIA [None]
